FAERS Safety Report 13524538 (Version 1)
Quarter: 2017Q2

REPORT INFORMATION
  Report Type: Report from Study
  Country: US (occurrence: US)
  Receive Date: 20170508
  Receipt Date: 20170508
  Transmission Date: 20170830
  Serious: Yes (Death)
  Sender: FDA-Public Use
  Company Number: US-ACTELION-A-US2017-153430

PATIENT
  Age: 81 Year
  Sex: Female

DRUGS (1)
  1. OPSUMIT [Suspect]
     Active Substance: MACITENTAN
     Indication: CONNECTIVE TISSUE DISORDER
     Dosage: 10 MG, UNK
     Route: 048
     Dates: start: 20161222

REACTIONS (1)
  - Death [Fatal]

NARRATIVE: CASE EVENT DATE: 201704
